FAERS Safety Report 18082175 (Version 1)
Quarter: 2020Q3

REPORT INFORMATION
  Report Type: Report from Study
  Country: None (occurrence: US)
  Receive Date: 20200729
  Receipt Date: 20200729
  Transmission Date: 20201103
  Serious: Yes (Hospitalization, Other)
  Sender: FDA-Public Use
  Company Number: US-ABBVIE-20K-163-3498997-00

PATIENT
  Sex: Female

DRUGS (2)
  1. FOLIC ACID. [Concomitant]
     Active Substance: FOLIC ACID
     Indication: PRODUCT USED FOR UNKNOWN INDICATION
  2. HUMIRA [Suspect]
     Active Substance: ADALIMUMAB
     Indication: RHEUMATOID ARTHRITIS
     Dosage: CITRATE FREE
     Route: 058

REACTIONS (11)
  - Arthralgia [Not Recovered/Not Resolved]
  - Vitamin D decreased [Unknown]
  - Weight decreased [Not Recovered/Not Resolved]
  - Drug ineffective [Not Recovered/Not Resolved]
  - Sinusitis [Not Recovered/Not Resolved]
  - Condition aggravated [Not Recovered/Not Resolved]
  - Unevaluable event [Not Recovered/Not Resolved]
  - Systemic lupus erythematosus [Unknown]
  - Blood glucose decreased [Unknown]
  - Rheumatoid factor increased [Unknown]
  - Food allergy [Unknown]
